FAERS Safety Report 18079989 (Version 2)
Quarter: 2020Q3

REPORT INFORMATION
  Report Type: Report from Study
  Country: BR (occurrence: BR)
  Receive Date: 20200728
  Receipt Date: 20200731
  Transmission Date: 20201103
  Serious: Yes (Other)
  Sender: FDA-Public Use
  Company Number: BR-SA-2020SA158682

PATIENT

DRUGS (8)
  1. LINEZOLIDE [Concomitant]
     Active Substance: LINEZOLID
     Indication: PRE-EXISTING DISEASE
     Dosage: 600 MG, BID
     Route: 042
     Dates: start: 20200613, end: 20200618
  2. DIPIRONE [Concomitant]
     Active Substance: METAMIZOLE SODIUM
     Indication: PRE-EXISTING DISEASE
     Dosage: 1000 MG, PRN
     Route: 042
     Dates: start: 20200614, end: 20200614
  3. DIPIRONE [Concomitant]
     Active Substance: METAMIZOLE SODIUM
     Dosage: 3000 MG, PRN
     Route: 042
     Dates: start: 20200616, end: 20200616
  4. DOMPERIDONE [Concomitant]
     Active Substance: DOMPERIDONE
     Dosage: 10 MG, TID
     Route: 048
     Dates: start: 20200616, end: 20200619
  5. SARILUMAB [Suspect]
     Active Substance: SARILUMAB
     Indication: COVID-19
     Dosage: 1 BAG; 1X; INFUSION RATE: 100 ML/H
     Route: 042
     Dates: start: 20200614, end: 20200615
  6. BISACODYL. [Concomitant]
     Active Substance: BISACODYL
     Dosage: 5 MG, PRN
     Route: 042
     Dates: start: 20200616, end: 20200616
  7. BUSCOPAN [Concomitant]
     Active Substance: BUTYLSCOPOLAMINE BROMIDE
     Dosage: DOSE: 1 AMPULE, PRN
     Route: 042
     Dates: start: 20200616, end: 20200616
  8. TAZOCIN [Concomitant]
     Active Substance: PIPERACILLIN SODIUM\TAZOBACTAM SODIUM
     Indication: PRE-EXISTING DISEASE
     Dosage: 4.5 G, QID
     Route: 042
     Dates: start: 20200615, end: 20200618

REACTIONS (1)
  - Alanine aminotransferase increased [Recovered/Resolved]

NARRATIVE: CASE EVENT DATE: 20200617
